FAERS Safety Report 4766300-0 (Version None)
Quarter: 2005Q3

REPORT INFORMATION
  Report Type: 
  Country: None (occurrence: None)
  Receive Date: 20050906
  Receipt Date: 20050822
  Transmission Date: 20060218
  Serious: Yes (Hospitalization)
  Sender: FDA-Public Use
  Company Number: USA0508106111

PATIENT
  Age: 66 Year
  Sex: Female

DRUGS (2)
  1. FORTEO [Suspect]
     Indication: OSTEOPOROSIS
     Dates: start: 20050804
  2. XANAX [Concomitant]

REACTIONS (4)
  - BONE PAIN [None]
  - CONDITION AGGRAVATED [None]
  - NERVOUSNESS [None]
  - TREMOR [None]
